FAERS Safety Report 7897516-2 (Version None)
Quarter: 2011Q4

REPORT INFORMATION
  Report Type: 
  Country: None (occurrence: None)
  Receive Date: 20111107
  Receipt Date: 20111102
  Transmission Date: 20120403
  Serious: Yes (Other)
  Sender: FDA-Public Use
  Company Number: JP-PFIZER INC-2011269667

PATIENT
  Age: 80 Year
  Sex: Male

DRUGS (3)
  1. LYRICA [Suspect]
     Indication: POST HERPETIC NEURALGIA
     Dosage: 50 MG/DAY
     Route: 048
     Dates: start: 20110125, end: 20110208
  2. LYRICA [Suspect]
     Dosage: 50 MG/DAY
     Dates: start: 20110901
  3. DEPAS [Suspect]
     Dosage: UNK
     Route: 048

REACTIONS (4)
  - MEMORY IMPAIRMENT [None]
  - OVERDOSE [None]
  - DEPRESSED LEVEL OF CONSCIOUSNESS [None]
  - ABNORMAL BEHAVIOUR [None]
